FAERS Safety Report 21367504 (Version 1)
Quarter: 2022Q3

REPORT INFORMATION
  Report Type: Spontaneous
  Country: FR (occurrence: FR)
  Receive Date: 20220923
  Receipt Date: 20220923
  Transmission Date: 20221027
  Serious: Yes (Life-Threatening, Hospitalization)
  Sender: FDA-Public Use
  Company Number: None

PATIENT
  Age: 72 Year
  Sex: Female
  Weight: 68 kg

DRUGS (6)
  1. METHOTREXATE [Suspect]
     Active Substance: METHOTREXATE
     Indication: Crohn^s disease
     Dosage: UNIT DOSE : 15 MG, FREQUENCY TIME : 1 WEEK, DURATION : 9 MONTH
     Dates: start: 20211126, end: 202208
  2. PAROXETINE HYDROCHLORIDE [Suspect]
     Active Substance: PAROXETINE HYDROCHLORIDE
     Indication: Depression
     Dosage: PAROXETINE (CHLORHYDRATE DE) ANHYDRE, UNIT DOSE : 1 DF, FREQUENCY TIME : 1 DAY, DURATION : 59 DAYS
     Dates: start: 20220614, end: 20220812
  3. LOPERAMIDE HYDROCHLORIDE [Suspect]
     Active Substance: LOPERAMIDE HYDROCHLORIDE
     Indication: Diarrhoea
     Dosage: LOPERAMIDE (CHLORHYDRATE DE), UNIT DOSE : 2 MG, DURATION : 7 DAYS
     Dates: start: 20220622, end: 20220629
  4. IBUPROFEN [Suspect]
     Active Substance: IBUPROFEN
     Indication: Pain
     Dosage: DURATION : 9 DAYS
     Dates: start: 20220801, end: 20220810
  5. METEOSPASMYL (ALVERINE CITRATE\DIMETHICONE) [Suspect]
     Active Substance: ALVERINE CITRATE\DIMETHICONE
     Indication: Abdominal pain
     Dosage: UNIT DOSE : 1 DF, FREQUENCY TIME : 1 DAY, DURATION : 59 DAYS
     Dates: start: 20220614, end: 20220812
  6. INFLIXIMAB [Suspect]
     Active Substance: INFLIXIMAB
     Indication: Crohn^s disease
     Dosage: INFLIXIMAB ((MAMMIFERE/HAMSTER/CELLULES CHO)), UNIT DOSE: 700 MG, FREQUENCY TIME : 1 MONTH, DURATION
     Dates: start: 20211126, end: 20220519

REACTIONS (2)
  - Toxic epidermal necrolysis [Recovered/Resolved]
  - Febrile bone marrow aplasia [Recovered/Resolved]

NARRATIVE: CASE EVENT DATE: 20220812
